FAERS Safety Report 20914071 (Version 1)
Quarter: 2022Q2

REPORT INFORMATION
  Report Type: Spontaneous
  Country: US (occurrence: US)
  Receive Date: 20220604
  Receipt Date: 20220604
  Transmission Date: 20220721
  Serious: No
  Sender: FDA-Public Use
  Company Number: US-SA-SAC20220516000601

PATIENT
  Sex: Female

DRUGS (35)
  1. DUPIXENT [Suspect]
     Active Substance: DUPILUMAB
     Indication: Dermatitis atopic
     Dosage: 300 MG, QOW
     Route: 058
     Dates: start: 20190103
  2. ALBUTEROL SULFATE [Concomitant]
     Active Substance: ALBUTEROL SULFATE
     Dosage: UNK
  3. ALBUTEROL SULFATE [Concomitant]
     Active Substance: ALBUTEROL SULFATE
  4. AMITRIPTYLINE [Concomitant]
     Active Substance: AMITRIPTYLINE
     Dosage: UNK
  5. AMITRIPTYLINE [Concomitant]
     Active Substance: AMITRIPTYLINE
  6. AUVI-Q [Concomitant]
     Active Substance: EPINEPHRINE
     Dosage: UNK
  7. AUVI-Q [Concomitant]
     Active Substance: EPINEPHRINE
  8. CLOBETASOL [Concomitant]
     Active Substance: CLOBETASOL
     Dosage: UNK
  9. CLOBETASOL [Concomitant]
     Active Substance: CLOBETASOL
  10. EPIDUO FORTE [Concomitant]
     Active Substance: ADAPALENE\BENZOYL PEROXIDE
     Dosage: UNK
  11. EPIDUO FORTE [Concomitant]
     Active Substance: ADAPALENE\BENZOYL PEROXIDE
  12. DESONIDE [Concomitant]
     Active Substance: DESONIDE
     Dosage: UNK
  13. DESONIDE [Concomitant]
     Active Substance: DESONIDE
  14. ESOMEPRAZOLE MAGNESIUM [Concomitant]
     Active Substance: ESOMEPRAZOLE MAGNESIUM
     Dosage: UNK
  15. GRANISETRON [Concomitant]
     Active Substance: GRANISETRON
     Dosage: UNK
  16. GRANISETRON [Concomitant]
     Active Substance: GRANISETRON
  17. HALOBETASOL PROPIONATE [Concomitant]
     Active Substance: HALOBETASOL PROPIONATE
     Dosage: UNK
  18. HALOBETASOL PROPIONATE [Concomitant]
     Active Substance: HALOBETASOL PROPIONATE
  19. KARBINAL ER [Concomitant]
     Active Substance: CARBINOXAMINE MALEATE
     Dosage: UNK
  20. KARBINAL ER [Concomitant]
     Active Substance: CARBINOXAMINE MALEATE
  21. PREDNISONE [Concomitant]
     Active Substance: PREDNISONE
     Dosage: UNK
  22. PREDNISONE [Concomitant]
     Active Substance: PREDNISONE
  23. RYCLORA [Concomitant]
     Active Substance: DEXCHLORPHENIRAMINE MALEATE
     Dosage: UNK
  24. RYCLORA [Concomitant]
     Active Substance: DEXCHLORPHENIRAMINE MALEATE
  25. TOPIRAMATE [Concomitant]
     Active Substance: TOPIRAMATE
     Dosage: UNK
  26. TOPIRAMATE [Concomitant]
     Active Substance: TOPIRAMATE
  27. TRETINOIN [Concomitant]
     Active Substance: TRETINOIN
     Dosage: UNK
  28. TRETINOIN [Concomitant]
     Active Substance: TRETINOIN
  29. TOPIRAMATE [Concomitant]
     Active Substance: TOPIRAMATE
     Dosage: UNK
  30. TOPIRAMATE [Concomitant]
     Active Substance: TOPIRAMATE
  31. LEVOCETIRIZINE DIHYDROCHLORIDE [Concomitant]
     Active Substance: LEVOCETIRIZINE DIHYDROCHLORIDE
     Dosage: UNK
  32. LEVOCETIRIZINE DIHYDROCHLORIDE [Concomitant]
     Active Substance: LEVOCETIRIZINE DIHYDROCHLORIDE
  33. LO ZUMANDIMINE [Concomitant]
     Dosage: UNK
  34. LO ZUMANDIMINE [Concomitant]
     Dosage: 03MG
  35. ESOMEPRAZOLE [Concomitant]
     Active Substance: ESOMEPRAZOLE

REACTIONS (2)
  - Sleep disorder [Not Recovered/Not Resolved]
  - Dermatitis atopic [Unknown]
